FAERS Safety Report 7768204-8 (Version None)
Quarter: 2011Q3

REPORT INFORMATION
  Report Type: 
  Country: None (occurrence: None)
  Receive Date: 20110922
  Receipt Date: 20110922
  Transmission Date: 20111222
  Serious: Yes (Death)
  Sender: FDA-Public Use
  Company Number: None

PATIENT
  Age: 70 Year
  Sex: Male
  Weight: 150.13 kg

DRUGS (1)
  1. ULORIC [Suspect]
     Indication: GOUT
     Dosage: 40MG
     Route: 048
     Dates: start: 20110908, end: 20110908

REACTIONS (2)
  - PULSE ABSENT [None]
  - UNRESPONSIVE TO STIMULI [None]
